FAERS Safety Report 9527603 (Version 1)
Quarter: 2013Q3

REPORT INFORMATION
  Report Type: Spontaneous
  Country: US (occurrence: None)
  Receive Date: 20130913
  Receipt Date: 20130913
  Transmission Date: 20140515
  Serious: No
  Sender: FDA-Public Use
  Company Number: None

PATIENT
  Age: 30 Year
  Sex: Female
  Weight: 64.86 kg

DRUGS (1)
  1. TRAMADOL [Suspect]
     Indication: ARTHRALGIA
     Dosage: 1 PILL AS NEEDED TAKEN BY MOUTH
     Route: 048
     Dates: start: 20130911

REACTIONS (6)
  - Dizziness [None]
  - Nausea [None]
  - Somnolence [None]
  - Loss of consciousness [None]
  - Irritability [None]
  - Lethargy [None]
